FAERS Safety Report 13141119 (Version 1)
Quarter: 2017Q1

REPORT INFORMATION
  Report Type: Spontaneous
  Country: US (occurrence: US)
  Receive Date: 20170123
  Receipt Date: 20170123
  Transmission Date: 20170428
  Serious: No
  Sender: FDA-Public Use
  Company Number: None

PATIENT
  Age: 65 Year
  Sex: Female

DRUGS (5)
  1. LINZESS [Concomitant]
     Active Substance: LINACLOTIDE
  2. OXYCODONE [Concomitant]
     Active Substance: OXYCODONE
  3. DEXILANT [Concomitant]
     Active Substance: DEXLANSOPRAZOLE
  4. REPATHA [Suspect]
     Active Substance: EVOLOCUMAB
     Indication: ANGINA PECTORIS
     Route: 058
     Dates: start: 20160123
  5. REPATHA [Suspect]
     Active Substance: EVOLOCUMAB
     Indication: HYPERLIPIDAEMIA
     Route: 058
     Dates: start: 20160123

REACTIONS (1)
  - Pituitary tumour [None]

NARRATIVE: CASE EVENT DATE: 20161114
